FAERS Safety Report 7724118-0 (Version None)
Quarter: 2011Q3

REPORT INFORMATION
  Report Type: 
  Country: None (occurrence: None)
  Receive Date: 20110901
  Receipt Date: 20110826
  Transmission Date: 20111222
  Serious: Yes (Hospitalization)
  Sender: FDA-Public Use
  Company Number: US-BRISTOL-MYERS SQUIBB COMPANY-16008096

PATIENT
  Age: 55 Year
  Sex: Male
  Weight: 145 kg

DRUGS (1)
  1. IPILIMUMAB [Suspect]
     Indication: MALIGNANT MELANOMA
     Dosage: LAST DOSE ON 27JUL11, DOSE 10 MG/KG Q 21 DAYS CYCLE 1-4
     Route: 042
     Dates: start: 20110613, end: 20110727

REACTIONS (5)
  - HEADACHE [None]
  - VOMITING [None]
  - NAUSEA [None]
  - FATIGUE [None]
  - ATAXIA [None]
